FAERS Safety Report 18541059 (Version 20)
Quarter: 2025Q2

REPORT INFORMATION
  Report Type: Spontaneous
  Country: US (occurrence: US)
  Receive Date: 20201124
  Receipt Date: 20250425
  Transmission Date: 20250717
  Serious: Yes (Hospitalization)
  Sender: PFIZER
  Company Number: US-PFIZER INC-2020462788

PATIENT
  Age: 71 Year
  Sex: Female
  Weight: 55.782 kg

DRUGS (11)
  1. IBRANCE [Suspect]
     Active Substance: PALBOCICLIB
     Indication: Breast cancer metastatic
     Route: 048
     Dates: start: 202009
  2. IBRANCE [Suspect]
     Active Substance: PALBOCICLIB
     Indication: Breast cancer stage IV
     Route: 048
     Dates: start: 202009
  3. IBRANCE [Suspect]
     Active Substance: PALBOCICLIB
     Indication: Hormone receptor positive breast cancer
     Dosage: TAKE 1 TABLET (125 MG TOTAL) BY MOUTH DAILY
     Route: 048
  4. IBRANCE [Suspect]
     Active Substance: PALBOCICLIB
  5. IBRANCE [Suspect]
     Active Substance: PALBOCICLIB
     Dosage: 125 MG, 1X/DAY
     Dates: start: 20201001
  6. XGEVA [Concomitant]
     Active Substance: DENOSUMAB
     Indication: Bone disorder
     Dates: start: 2021, end: 202107
  7. XGEVA [Concomitant]
     Active Substance: DENOSUMAB
     Dates: end: 2022
  8. LETROZOLE [Concomitant]
     Active Substance: LETROZOLE
     Indication: Neoplasm malignant
     Dates: start: 20201001
  9. LOSARTAN POTASSIUM [Concomitant]
     Active Substance: LOSARTAN POTASSIUM
     Indication: Hypertension
     Dates: start: 2016
  10. HYDROXYZINE [Concomitant]
     Active Substance: HYDROXYZINE HYDROCHLORIDE
     Indication: Anxiety
     Dates: start: 202309
  11. AMLODIPINE BESYLATE [Concomitant]
     Active Substance: AMLODIPINE BESYLATE
     Dates: start: 20230712

REACTIONS (8)
  - Fatigue [Unknown]
  - White blood cell count decreased [Recovered/Resolved]
  - Panic attack [Recovered/Resolved]
  - Disease recurrence [Recovered/Resolved]
  - Constipation [Recovered/Resolved]
  - Dizziness [Recovered/Resolved]
  - Tooth disorder [Recovered/Resolved]
  - Anxiety [Recovered/Resolved]

NARRATIVE: CASE EVENT DATE: 20220406
